FAERS Safety Report 12316216 (Version 1)
Quarter: 2016Q2

REPORT INFORMATION
  Report Type: Spontaneous
  Country: CN (occurrence: CN)
  Receive Date: 20160428
  Receipt Date: 20160428
  Transmission Date: 20160815
  Serious: Yes (Hospitalization, Other)
  Sender: FDA-Public Use
  Company Number: CN-GILEAD-2016-0211066

PATIENT
  Age: 36 Year
  Sex: Male

DRUGS (2)
  1. HEPSERA [Suspect]
     Active Substance: ADEFOVIR DIPIVOXIL
     Dosage: UNK
     Route: 065
  2. HEPSERA [Suspect]
     Active Substance: ADEFOVIR DIPIVOXIL
     Indication: HEPATITIS B
     Dosage: 20 MG, QD
     Route: 065

REACTIONS (22)
  - Skin exfoliation [Recovering/Resolving]
  - Condition aggravated [Recovering/Resolving]
  - Activities of daily living impaired [Recovering/Resolving]
  - Bone pain [Recovering/Resolving]
  - Movement disorder [Recovering/Resolving]
  - Fanconi syndrome acquired [Recovering/Resolving]
  - Musculoskeletal pain [Recovering/Resolving]
  - Renal scan abnormal [Recovering/Resolving]
  - Acidosis hyperchloraemic [Unknown]
  - Back pain [Recovering/Resolving]
  - Pain in extremity [Recovering/Resolving]
  - Overdose [Unknown]
  - Spinal pain [Recovering/Resolving]
  - Arthralgia [Recovering/Resolving]
  - Pruritus generalised [Recovering/Resolving]
  - Osteoporosis [Recovering/Resolving]
  - Hypophosphataemia [Recovering/Resolving]
  - Proteinuria [Recovered/Resolved]
  - Pain [Recovering/Resolving]
  - Osteomalacia [Recovering/Resolving]
  - Rib fracture [Recovering/Resolving]
  - Glycosuria [Recovered/Resolved]
